FAERS Safety Report 8621561-2 (Version None)
Quarter: 2012Q3

REPORT INFORMATION
  Report Type: 
  Country: None (occurrence: None)
  Receive Date: 20120825
  Receipt Date: 20120816
  Transmission Date: 20120928
  Serious: Yes (Hospitalization)
  Sender: FDA-Public Use
  Company Number: JP-009507513-1207JPN004338

PATIENT

DRUGS (6)
  1. DIAZOXIDE [Suspect]
     Dosage: 75 MG, TID
     Route: 048
     Dates: start: 20111208, end: 20111208
  2. DIAZOXIDE [Suspect]
     Indication: HYPOGLYCAEMIA
     Dosage: 25 MG, TID
     Route: 048
     Dates: start: 20111207, end: 20111208
  3. DIAZOXIDE [Suspect]
     Dosage: 100 MG: MORNING, 75 MG: NOON AND EVENING
     Route: 048
     Dates: start: 20111209, end: 20111220
  4. ACTONEL [Concomitant]
     Indication: OSTEOPOROSIS
     Dosage: 1 WEEK
     Route: 048
  5. AMLODIPINE [Concomitant]
     Indication: HYPERTENSION
     Dosage: THE DIVIDED DOSE FREQUENCY IS UNCERTAIN
     Route: 048
  6. ALFACALCIDOL [Concomitant]
     Indication: OSTEOPOROSIS
     Dosage: 1 MICROGRAM, QD
     Route: 048

REACTIONS (3)
  - HYPOCALCAEMIA [None]
  - PANCYTOPENIA [None]
  - HYPOKALAEMIA [None]
